FAERS Safety Report 5884071-1 (Version None)
Quarter: 2008Q3

REPORT INFORMATION
  Report Type: 
  Country: None (occurrence: None)
  Receive Date: 20080911
  Receipt Date: 20080904
  Transmission Date: 20090109
  Serious: Yes (Other)
  Sender: FDA-Public Use
  Company Number: THQ2008A01786

PATIENT
  Age: 58 Year
  Sex: Male

DRUGS (6)
  1. ACTOS [Suspect]
     Indication: TYPE 2 DIABETES MELLITUS
     Dosage: PER ORAL
     Route: 048
     Dates: start: 20020422, end: 20041124
  2. AVANDIA [Concomitant]
  3. METFORMIN HCL [Concomitant]
  4. MIXTARD /00646001/ (INSULIN HUMAN) [Concomitant]
  5. CORODIL (ENALAPRIL) [Concomitant]
  6. ZOVATOR [Concomitant]

REACTIONS (1)
  - MACULOPATHY [None]
